FAERS Safety Report 8589812-0 (Version None)
Quarter: 2012Q3

REPORT INFORMATION
  Report Type: 
  Country: None (occurrence: None)
  Receive Date: 20120813
  Receipt Date: 20120808
  Transmission Date: 20120928
  Serious: No
  Sender: FDA-Public Use
  Company Number: US-B.I. PHARMACEUTICALS,INC./RIDGEFIELD-2012-BP-17869BP

PATIENT
  Sex: Female

DRUGS (5)
  1. FLUTICASONE PROPIONATE [Suspect]
     Indication: CHRONIC OBSTRUCTIVE PULMONARY DISEASE
     Route: 055
     Dates: start: 20120101
  2. OMEPRAZOLE [Concomitant]
     Route: 048
  3. LITHIUM CARBONATE [Concomitant]
     Dates: start: 20110701
  4. TRAZODONE HYDROCHLORIDE [Concomitant]
     Route: 048
     Dates: start: 20110701
  5. SPIRIVA [Suspect]
     Indication: CHRONIC OBSTRUCTIVE PULMONARY DISEASE
     Dosage: 18 MCG
     Route: 055
     Dates: start: 20120101

REACTIONS (2)
  - DRY THROAT [None]
  - ORAL PAIN [None]
